FAERS Safety Report 12848031 (Version 1)
Quarter: 2016Q4

REPORT INFORMATION
  Report Type: Spontaneous
  Country: US (occurrence: US)
  Receive Date: 20161014
  Receipt Date: 20161014
  Transmission Date: 20170207
  Serious: No
  Sender: FDA-Public Use
  Company Number: US-JNJFOC-20160922865

PATIENT
  Sex: Female

DRUGS (3)
  1. TYLENOL EXTRA STRENGTH [Suspect]
     Active Substance: ACETAMINOPHEN
     Indication: PAIN
     Dosage: TOOK TOTAL 24 DOSAGE FORM BETWEEN NIGHT OF 19SEP2016 AND 21SEP2016
     Route: 048
     Dates: start: 20160919
  2. TYLENOL REGULAR STRENGTH [Suspect]
     Active Substance: ACETAMINOPHEN
     Indication: PAIN
     Dosage: TOOK TOTAL 10 DOSAGE FORM BETWEEN NIGHT OF 19SEP2016 AND 21SEP2016
     Route: 065
     Dates: start: 20160919
  3. HYDROCODONE/PARACETAMOL [Suspect]
     Active Substance: ACETAMINOPHEN\HYDROCODONE BITARTRATE
     Indication: PAIN
     Dosage: TOOK TOTAL 4 DOSAGE FORM BETWEEN THE NIGHT OF 19-SEP-2016 AND 21-SEP-2016
     Route: 065
     Dates: start: 20160919

REACTIONS (3)
  - Drug administration error [Unknown]
  - Product use issue [Unknown]
  - Overdose [Unknown]

NARRATIVE: CASE EVENT DATE: 20160919
